FAERS Safety Report 10390564 (Version 1)
Quarter: 2014Q3

REPORT INFORMATION
  Report Type: Spontaneous
  Country: GB (occurrence: GB)
  Receive Date: 20140818
  Receipt Date: 20140818
  Transmission Date: 20150326
  Serious: Yes (Hospitalization)
  Sender: FDA-Public Use
  Company Number: GB-TEVA-502842ISR

PATIENT
  Age: 50 Year
  Sex: Female

DRUGS (1)
  1. BACLOFEN. [Suspect]
     Active Substance: BACLOFEN
     Indication: OVERDOSE
     Dosage: 25 TABLETS
     Route: 048

REACTIONS (6)
  - Drug withdrawal syndrome [Recovered/Resolved]
  - Overdose [Recovered/Resolved]
  - Hypotension [Unknown]
  - Sedation [Unknown]
  - Lethargy [Unknown]
  - Status epilepticus [Recovered/Resolved]
